FAERS Safety Report 14101227 (Version 1)
Quarter: 2017Q4

REPORT INFORMATION
  Report Type: Spontaneous
  Country: US (occurrence: US)
  Receive Date: 20171018
  Receipt Date: 20171018
  Transmission Date: 20180321
  Serious: No
  Sender: FDA-Public Use
  Company Number: US-TEVA-817436ACC

PATIENT
  Age: 27 Year
  Sex: Female

DRUGS (1)
  1. PLAN B ONE-STEP [Suspect]
     Active Substance: LEVONORGESTREL
     Indication: POST COITAL CONTRACEPTION
     Dates: start: 20170929, end: 20170929

REACTIONS (7)
  - Vaginal haemorrhage [Recovering/Resolving]
  - Malaise [Unknown]
  - Nausea [Unknown]
  - Breast pain [Unknown]
  - Fatigue [Unknown]
  - Vomiting [Recovered/Resolved]
  - Muscle spasms [Unknown]

NARRATIVE: CASE EVENT DATE: 201710
